FAERS Safety Report 9833228 (Version 1)
Quarter: 2014Q1

REPORT INFORMATION
  Report Type: Spontaneous
  Country: BR (occurrence: BR)
  Receive Date: 20140121
  Receipt Date: 20140121
  Transmission Date: 20141002
  Serious: Yes (Other)
  Sender: FDA-Public Use
  Company Number: PHHY2014BR006453

PATIENT
  Sex: Female

DRUGS (1)
  1. GENTEAL GEL [Suspect]
     Dosage: UNK UKN, UNK

REACTIONS (1)
  - Retinal detachment [Unknown]
